FAERS Safety Report 7741652-8 (Version None)
Quarter: 2011Q3

REPORT INFORMATION
  Report Type: 
  Country: None (occurrence: None)
  Receive Date: 20110912
  Receipt Date: 20110830
  Transmission Date: 20111222
  Serious: Yes (Hospitalization)
  Sender: FDA-Public Use
  Company Number: PL-BRISTOL-MYERS SQUIBB COMPANY-15683857

PATIENT
  Age: 38 Year
  Sex: Female

DRUGS (4)
  1. ARIPIPRAZOLE [Suspect]
     Indication: SCHIZOPHRENIA
     Dosage: RESCUE THERAPY WITH PO ARIPRAZ 12APR-18APR11 10MG,19APR-4MAY11 15MG,5APR11-20MG,6APR-5MAY11
     Route: 030
     Dates: start: 20110329, end: 20110426
  2. DIAZEPAM [Concomitant]
     Indication: SLEEP DISORDER
     Dosage: 12APR-18APR11,19APR-4MAY11,27APR11-25MG,5MAY-8MAY11 15MG9MAY-11MAY 10MG,12MAY-14MAY11,17-31MAY11
     Dates: start: 20110405
  3. ARIPIPRAZOLE [Suspect]
     Indication: SCHIZOPHRENIA
     Dosage: RESCUE THERAPY WITH PO ARIPRAZ 12APR-18APR11 10MG,19APR-4MAY11 15MG,5APR11-20MG,6APR-5MAY11
     Route: 048
     Dates: start: 20101124, end: 20110505
  4. DIAZEPAM [Concomitant]
     Dosage: 1DF=10-25MG,TAB
     Route: 030

REACTIONS (1)
  - PSYCHOTIC DISORDER [None]
